FAERS Safety Report 16767737 (Version 1)
Quarter: 2019Q3

REPORT INFORMATION
  Report Type: Spontaneous
  Country: AU (occurrence: AU)
  Receive Date: 20190903
  Receipt Date: 20190903
  Transmission Date: 20191005
  Serious: Yes (Other)
  Sender: FDA-Public Use
  Company Number: AU-SA-2019SA240095

PATIENT
  Age: 79 Year
  Sex: Male

DRUGS (1)
  1. DOCETAXEL. [Suspect]
     Active Substance: DOCETAXEL
     Dosage: UNK

REACTIONS (5)
  - Dyspnoea [Recovered/Resolved]
  - Confusional state [Recovered/Resolved]
  - Chest discomfort [Unknown]
  - Flushing [Unknown]
  - Coma scale abnormal [Recovered/Resolved]

NARRATIVE: CASE EVENT DATE: 20190204
